FAERS Safety Report 20255048 (Version 2)
Quarter: 2023Q1

REPORT INFORMATION
  Report Type: Spontaneous
  Country: DE (occurrence: DE)
  Receive Date: 20211230
  Receipt Date: 20230120
  Transmission Date: 20230417
  Serious: Yes (Hospitalization, Other)
  Sender: FDA-Public Use
  Company Number: DE-ROCHE-2176591

PATIENT
  Age: 49 Year
  Sex: Female
  Weight: 78 kg

DRUGS (24)
  1. ATORVASTATIN [Suspect]
     Active Substance: ATORVASTATIN
     Indication: Blood cholesterol increased
     Dosage: 20 MILLIGRAM, UNK
     Route: 065
     Dates: end: 20190530
  2. COVID-19 VACCINE NOS [Suspect]
     Active Substance: COVID-19 VACCINE NOS
     Indication: Product used for unknown indication
     Dosage: SUBSEQUENT DOSE: 07/MAY/2021 ()
     Route: 065
     Dates: start: 20210326
  3. OCREVUS [Suspect]
     Active Substance: OCRELIZUMAB
     Indication: Relapsing-remitting multiple sclerosis
     Dosage: 600 MILLIGRAM, UNK, INFUSION, SOLUTION
     Route: 040
     Dates: start: 20190220
  4. OCREVUS [Suspect]
     Active Substance: OCRELIZUMAB
     Dosage: 300 MILLIGRAM, UNK, INFUSION, SOLUTION
     Route: 040
     Dates: start: 20180822
  5. OCREVUS [Suspect]
     Active Substance: OCRELIZUMAB
     Dosage: 300 MILLIGRAM, UNK, INFUSION, SOLUTION
     Route: 040
     Dates: start: 20180808
  6. OCREVUS [Suspect]
     Active Substance: OCRELIZUMAB
     Dosage: 600 MILLIGRAM, 5TH MAINTENANCE DOSE, INFUSION, SOLUTION
     Route: 040
     Dates: start: 20210623
  7. OCREVUS [Suspect]
     Active Substance: OCRELIZUMAB
     Dosage: 600 MILLIGRAM, UNK, INFUSION, SOLUTION
     Route: 040
     Dates: start: 20200813
  8. METFORMIN [Suspect]
     Active Substance: METFORMIN HYDROCHLORIDE
     Indication: Product used for unknown indication
     Dosage: 500 MILLIGRAM, DAILY
     Route: 065
     Dates: start: 20190423
  9. METFORMIN [Suspect]
     Active Substance: METFORMIN HYDROCHLORIDE
     Dosage: 1000 MILLIGRAM, DAILY
     Route: 065
  10. OXCARBAZEPINE [Concomitant]
     Active Substance: OXCARBAZEPINE
     Indication: Product used for unknown indication
     Dosage: 600 MILLIGRAM, BID
     Route: 048
  11. OXCARBAZEPINE [Concomitant]
     Active Substance: OXCARBAZEPINE
     Dosage: 600 MILLIGRAM, BID
     Route: 048
     Dates: start: 20180724
  12. CLEMASTINE [Concomitant]
     Active Substance: CLEMASTINE
     Indication: Premedication
     Dosage: UNK
     Route: 042
  13. ALBUTEROL [Concomitant]
     Active Substance: ALBUTEROL
     Indication: Product used for unknown indication
     Dosage: UNK
     Route: 065
  14. LEVETIRACETAM [Concomitant]
     Active Substance: LEVETIRACETAM
     Indication: Epilepsy
     Dosage: 1000 MILLIGRAM, BID
     Route: 048
     Dates: start: 2017
  15. SIMVASTATIN [Concomitant]
     Active Substance: SIMVASTATIN
     Indication: Product used for unknown indication
     Dosage: 20 MILLIGRAM, DAILY
     Route: 065
     Dates: start: 20190823
  16. FLUTICASONE PROPIONATE\SALMETEROL XINAFOATE [Concomitant]
     Active Substance: FLUTICASONE PROPIONATE\SALMETEROL XINAFOATE
     Indication: Asthma
     Dosage: 550 MICROGRAM, BID
     Route: 065
     Dates: start: 2011
  17. FLUTICASONE PROPIONATE\SALMETEROL XINAFOATE [Concomitant]
     Active Substance: FLUTICASONE PROPIONATE\SALMETEROL XINAFOATE
     Dosage: 1 DOSAGE FORM, BID
     Route: 065
  18. IBUPROFEN [Concomitant]
     Active Substance: IBUPROFEN
     Indication: Product used for unknown indication
     Dosage: 400 MILLIGRAM, AS REQUIRED
     Route: 048
  19. LEVOTHYROXINE SODIUM\POTASSIUM IODIDE [Concomitant]
     Active Substance: LEVOTHYROXINE SODIUM\POTASSIUM IODIDE
     Indication: Hypothyroidism
     Dosage: 100 MICROGRAM, DAILY
     Route: 048
     Dates: start: 2011
  20. LEVOTHYROXINE SODIUM\POTASSIUM IODIDE [Concomitant]
     Active Substance: LEVOTHYROXINE SODIUM\POTASSIUM IODIDE
     Dosage: 100 MICROGRAM, DAILY
     Route: 048
  21. SODIUM CHLORIDE [Concomitant]
     Active Substance: SODIUM CHLORIDE
     Indication: Product used for unknown indication
     Dosage: 100 MILLILITER, UNK
     Route: 065
  22. PANTOPRAZOLE [Concomitant]
     Active Substance: PANTOPRAZOLE
     Indication: Product used for unknown indication
     Dosage: 20 MILLIGRAM, UNK,
     Route: 065
  23. PANTOPRAZOLE [Concomitant]
     Active Substance: PANTOPRAZOLE
     Dosage: 20 MILLIGRAM, DAILY, EVERY 2-3 DAYS
     Route: 048
     Dates: start: 2011
  24. ROSUVASTATIN [Concomitant]
     Active Substance: ROSUVASTATIN
     Indication: Product used for unknown indication
     Dosage: 1, DAILY
     Route: 065

REACTIONS (30)
  - Interleukin level increased [Unknown]
  - Multiple sclerosis relapse [Recovered/Resolved]
  - Pain in extremity [Recovered/Resolved]
  - Urticaria [Not Recovered/Not Resolved]
  - Muscular weakness [Recovered/Resolved]
  - Basal cell carcinoma [Recovered/Resolved]
  - Herpes zoster [Recovered/Resolved]
  - Arthralgia [Recovered/Resolved]
  - Uhthoff^s phenomenon [Not Recovered/Not Resolved]
  - B-lymphocyte count decreased [Recovered/Resolved]
  - Lymph node pain [Recovered/Resolved]
  - Chills [Recovered/Resolved]
  - Diarrhoea [Recovered/Resolved]
  - Epistaxis [Recovered/Resolved]
  - Blood glucose increased [Recovered/Resolved]
  - Product administration error [Unknown]
  - Blood cholesterol increased [Recovered/Resolved]
  - Cardiovascular disorder [Recovered/Resolved]
  - Paraesthesia [Recovered/Resolved]
  - Nasopharyngitis [Recovering/Resolving]
  - Granuloma annulare [Not Recovered/Not Resolved]
  - Type 2 diabetes mellitus [Unknown]
  - Myalgia [Recovered/Resolved]
  - Injection site swelling [Recovered/Resolved]
  - Headache [Recovered/Resolved]
  - Aortic disorder [Recovered/Resolved]
  - Lyme disease [Not Recovered/Not Resolved]
  - Fatigue [Recovered/Resolved]
  - Bronchitis [Recovered/Resolved]
  - Intervertebral disc protrusion [Recovering/Resolving]

NARRATIVE: CASE EVENT DATE: 20180822
